FAERS Safety Report 12420331 (Version 1)
Quarter: 2016Q2

REPORT INFORMATION
  Report Type: Report from Study
  Country: GR (occurrence: GR)
  Receive Date: 20160531
  Receipt Date: 20160531
  Transmission Date: 20160815
  Serious: No
  Sender: FDA-Public Use
  Company Number: PHHY2016GR074761

PATIENT
  Age: 30 Year
  Sex: Female

DRUGS (1)
  1. TASIGNA [Suspect]
     Active Substance: NILOTINIB
     Indication: CHRONIC MYELOID LEUKAEMIA
     Dosage: 600 MG, UNK
     Route: 065

REACTIONS (5)
  - Accidental overdose [Unknown]
  - Acne [Unknown]
  - Erythema [Unknown]
  - Alopecia [Unknown]
  - Pruritus [Unknown]
